FAERS Safety Report 6568698-X (Version None)
Quarter: 2010Q1

REPORT INFORMATION
  Report Type: 
  Country: None (occurrence: None)
  Receive Date: 20100128
  Receipt Date: 20100114
  Transmission Date: 20100710
  Serious: Yes (Other)
  Sender: FDA-Public Use
  Company Number: 2010BM00021

PATIENT
  Age: 15 Year
  Sex: Female

DRUGS (1)
  1. NAGLAZYME [Suspect]
     Indication: MUCOPOLYSACCHARIDOSIS VI
     Dosage: 20 MG; QW; IVDRP
     Route: 041
     Dates: start: 20090916

REACTIONS (3)
  - DRUG DOSE OMISSION [None]
  - FEMUR FRACTURE [None]
  - MUSCULAR WEAKNESS [None]
